FAERS Safety Report 11306247 (Version 2)
Quarter: 2016Q1

REPORT INFORMATION
  Report Type: Report from Study
  Country: FR (occurrence: FR)
  Receive Date: 20150723
  Receipt Date: 20160218
  Transmission Date: 20160525
  Serious: Yes (Death, Hospitalization, Other)
  Sender: FDA-Public Use
  Company Number: FR-CELGENE-FRA-2015073589

PATIENT

DRUGS (6)
  1. DAUNORUBICIN [Concomitant]
     Active Substance: DAUNORUBICIN
     Indication: ACUTE MYELOID LEUKAEMIA
  2. ARA-C [Concomitant]
     Active Substance: CYTARABINE
     Indication: MYELODYSPLASTIC SYNDROME
     Route: 041
  3. REVLIMID [Suspect]
     Active Substance: LENALIDOMIDE
     Indication: ACUTE MYELOID LEUKAEMIA
  4. ARA-C [Concomitant]
     Active Substance: CYTARABINE
     Indication: ACUTE MYELOID LEUKAEMIA
  5. DAUNORUBICIN [Concomitant]
     Active Substance: DAUNORUBICIN
     Indication: MYELODYSPLASTIC SYNDROME
     Route: 041
  6. REVLIMID [Suspect]
     Active Substance: LENALIDOMIDE
     Indication: MYELODYSPLASTIC SYNDROME
     Dosage: .4762 MILLIGRAM
     Route: 048

REACTIONS (9)
  - Death [Fatal]
  - Pulmonary sepsis [Unknown]
  - Cardiovascular disorder [Unknown]
  - Sepsis [Unknown]
  - Gastrointestinal toxicity [Unknown]
  - Neurotoxicity [Unknown]
  - Transaminases increased [Unknown]
  - Blood creatinine increased [Unknown]
  - Disease recurrence [Unknown]
